FAERS Safety Report 20215002 (Version 2)
Quarter: 2022Q1

REPORT INFORMATION
  Report Type: Spontaneous
  Country: US (occurrence: US)
  Receive Date: 20211222
  Receipt Date: 20220224
  Transmission Date: 20220423
  Serious: Yes (Other)
  Sender: FDA-Public Use
  Company Number: US-CELGENE-USA-20211205899

PATIENT
  Sex: Female
  Weight: 51.574 kg

DRUGS (2)
  1. POMALYST [Suspect]
     Active Substance: POMALIDOMIDE
     Indication: Plasma cell myeloma
     Dosage: 4 MILLIGRAM
     Route: 048
     Dates: start: 202109
  2. POMALYST [Suspect]
     Active Substance: POMALIDOMIDE
     Dosage: 2 MILLIGRAM
     Route: 048
     Dates: start: 20211023

REACTIONS (21)
  - Neuropathy peripheral [Unknown]
  - Fatigue [Unknown]
  - Constipation [Unknown]
  - Chest pain [Unknown]
  - Tremor [Unknown]
  - Erythema [Unknown]
  - Dizziness [Unknown]
  - Back pain [Unknown]
  - Chills [Unknown]
  - Dry mouth [Unknown]
  - Dysphonia [Unknown]
  - Asthenia [Unknown]
  - Vision blurred [Unknown]
  - Increased appetite [Unknown]
  - Dehydration [Unknown]
  - Hot flush [Unknown]
  - Memory impairment [Unknown]
  - Balance disorder [Unknown]
  - Palpitations [Unknown]
  - Feeling abnormal [Unknown]
  - Dysphagia [Unknown]

NARRATIVE: CASE EVENT DATE: 20210101
